FAERS Safety Report 16306182 (Version 2)
Quarter: 2020Q4

REPORT INFORMATION
  Report Type: Spontaneous
  Country: US (occurrence: US)
  Receive Date: 20190513
  Receipt Date: 20201225
  Transmission Date: 20210113
  Serious: Yes (Other)
  Sender: FDA-Public Use
  Company Number: US-ASTRAZENECA-2019SE65208

PATIENT
  Age: 22689 Day
  Sex: Male

DRUGS (98)
  1. PREVACID [Suspect]
     Active Substance: LANSOPRAZOLE
     Indication: GASTROOESOPHAGEAL REFLUX DISEASE
     Route: 065
  2. IBUPROFEN. [Concomitant]
     Active Substance: IBUPROFEN
     Indication: HEADACHE
  3. MYLANTA [Concomitant]
     Active Substance: ALUMINUM HYDROXIDE\DIMETHICONE\MAGNESIUM HYDROXIDE
  4. COUMADIN [Concomitant]
     Active Substance: WARFARIN SODIUM
  5. MIRTAZAPINE. [Concomitant]
     Active Substance: MIRTAZAPINE
  6. FLUTICASONE. [Concomitant]
     Active Substance: FLUTICASONE
  7. PROAIR HFA [Concomitant]
     Active Substance: ALBUTEROL SULFATE
  8. ACYCLOVIR. [Concomitant]
     Active Substance: ACYCLOVIR
  9. ATORVASTATIN [Concomitant]
     Active Substance: ATORVASTATIN
  10. GLUCOVANCE [Concomitant]
     Active Substance: GLYBURIDE\METFORMIN HYDROCHLORIDE
  11. BACITRACIN/NEOMYCIN/POLY [Concomitant]
  12. DEXTROSE. [Concomitant]
     Active Substance: DEXTROSE
  13. DIPHENHYDRAMINE. [Concomitant]
     Active Substance: DIPHENHYDRAMINE
  14. GLUCAGON. [Concomitant]
     Active Substance: GLUCAGON
  15. MAGNESIUM HYDROXIDE. [Concomitant]
     Active Substance: MAGNESIUM HYDROXIDE
  16. PROTAMINE [Concomitant]
     Active Substance: PROTAMINE
  17. DARVOCET [Concomitant]
     Active Substance: ACETAMINOPHEN\PROPOXYPHENE HYDROCHLORIDE
  18. AMBIEN [Concomitant]
     Active Substance: ZOLPIDEM TARTRATE
  19. PRILOSEC [Suspect]
     Active Substance: OMEPRAZOLE MAGNESIUM
     Indication: GASTROOESOPHAGEAL REFLUX DISEASE
     Dosage: GENERIC
     Route: 065
     Dates: start: 201101
  20. IBUPROFEN. [Concomitant]
     Active Substance: IBUPROFEN
     Indication: PAIN
  21. EXCEDRIN [Concomitant]
     Active Substance: ACETAMINOPHEN\ASPIRIN\CAFFEINE
     Indication: PAIN
  22. HYDROCODONE BITARTRATE AND ACETAMINOPHEN [Concomitant]
     Active Substance: ACETAMINOPHEN\HYDROCODONE BITARTRATE
  23. RENVELA [Concomitant]
     Active Substance: SEVELAMER CARBONATE
  24. CLOPIDOGREL [Concomitant]
     Active Substance: CLOPIDOGREL BISULFATE
  25. POLYETHYLENE GLYCOL [Concomitant]
     Active Substance: POLYETHYLENE GLYCOLS
  26. GLYBURIDE. [Concomitant]
     Active Substance: GLYBURIDE
  27. DIVALPROEX [Concomitant]
     Active Substance: DIVALPROEX SODIUM
  28. PLAVIX [Concomitant]
     Active Substance: CLOPIDOGREL BISULFATE
  29. BETADINE [Concomitant]
     Active Substance: POVIDONE-IODINE
  30. PROPOXYPHENE. [Concomitant]
     Active Substance: PROPOXYPHENE
  31. MICARDIS [Concomitant]
     Active Substance: TELMISARTAN
  32. ZOLOFT [Concomitant]
     Active Substance: SERTRALINE HYDROCHLORIDE
  33. BENZONATATE. [Concomitant]
     Active Substance: BENZONATATE
  34. HUMALOG [Concomitant]
     Active Substance: INSULIN LISPRO
  35. PRILOSEC [Suspect]
     Active Substance: OMEPRAZOLE MAGNESIUM
     Indication: GASTROOESOPHAGEAL REFLUX DISEASE
     Route: 048
  36. EXCEDRIN [Concomitant]
     Active Substance: ACETAMINOPHEN\ASPIRIN\CAFFEINE
     Indication: HEADACHE
  37. ZANTAC [Concomitant]
     Active Substance: RANITIDINE HYDROCHLORIDE
  38. FOLIC ACID. [Concomitant]
     Active Substance: FOLIC ACID
  39. LANTUS [Concomitant]
     Active Substance: INSULIN GLARGINE
  40. QUETIAPINE. [Concomitant]
     Active Substance: QUETIAPINE
  41. CALCIUM ACETATE. [Concomitant]
     Active Substance: CALCIUM ACETATE
  42. ONGLYZA [Concomitant]
     Active Substance: SAXAGLIPTIN HYDROCHLORIDE
  43. POTASSIUM CHLORIDE. [Concomitant]
     Active Substance: POTASSIUM CHLORIDE
  44. VITAMIN E [Concomitant]
     Active Substance: .ALPHA.-TOCOPHEROL
     Indication: BLOOD CHOLESTEROL ABNORMAL
  45. FAMOTIDINE. [Concomitant]
     Active Substance: FAMOTIDINE
  46. ALPRAZOLAM. [Concomitant]
     Active Substance: ALPRAZOLAM
  47. ATROPINE SULPHATE [Concomitant]
     Active Substance: ATROPINE SULFATE
  48. LACTULOSE. [Concomitant]
     Active Substance: LACTULOSE
  49. PREDNISONE. [Concomitant]
     Active Substance: PREDNISONE
  50. BENICAR [Concomitant]
     Active Substance: OLMESARTAN MEDOXOMIL
  51. CHLORHEXIDINE [Concomitant]
     Active Substance: CHLORHEXIDINE
  52. DOCUSATE SODIUM. [Concomitant]
     Active Substance: DOCUSATE SODIUM
  53. FLUOCINONIDE. [Concomitant]
     Active Substance: FLUOCINONIDE
  54. ONDANSETRON [Concomitant]
     Active Substance: ONDANSETRON
  55. TYLENOL [Concomitant]
     Active Substance: ACETAMINOPHEN
     Indication: PAIN
  56. TYLENOL [Concomitant]
     Active Substance: ACETAMINOPHEN
     Indication: HEADACHE
  57. VITAMIN D [Concomitant]
     Active Substance: VITAMIN D NOS
  58. DRONABINOL. [Concomitant]
     Active Substance: DRONABINOL
  59. DONEPEZIL. [Concomitant]
     Active Substance: DONEPEZIL
  60. HYDRALAZINE [Concomitant]
     Active Substance: HYDRALAZINE HYDROCHLORIDE
  61. ADVAIR DISKUS [Concomitant]
     Active Substance: FLUTICASONE PROPIONATE\SALMETEROL XINAFOATE
  62. GEMFIBROZIL. [Concomitant]
     Active Substance: GEMFIBROZIL
  63. VYTORIN [Concomitant]
     Active Substance: EZETIMIBE\SIMVASTATIN
  64. AMIODARONE [Concomitant]
     Active Substance: AMIODARONE
  65. SODIUM CHLORIDE. [Concomitant]
     Active Substance: SODIUM CHLORIDE
  66. TRAJENTA [Concomitant]
     Active Substance: LINAGLIPTIN
  67. DOXYCYCLINE HYCLATE. [Concomitant]
     Active Substance: DOXYCYCLINE HYCLATE
  68. NEXIUM [Suspect]
     Active Substance: ESOMEPRAZOLE MAGNESIUM
     Indication: GASTROOESOPHAGEAL REFLUX DISEASE
     Route: 048
     Dates: start: 201205
  69. DOXEPIN [Concomitant]
     Active Substance: DOXEPIN
  70. ASPIRIN. [Concomitant]
     Active Substance: ASPIRIN
     Indication: HEADACHE
  71. ALEVE [Concomitant]
     Active Substance: NAPROXEN SODIUM
     Indication: HEADACHE
  72. CRESTOR [Concomitant]
     Active Substance: ROSUVASTATIN CALCIUM
  73. AMOX/K [Concomitant]
  74. PROCHLORPERAZINE. [Concomitant]
     Active Substance: PROCHLORPERAZINE
  75. OLOPATADINE HYDROCHLORIDE. [Concomitant]
     Active Substance: OLOPATADINE HYDROCHLORIDE
  76. CHERATUSSIN [Concomitant]
     Active Substance: AMMONIUM CHLORIDE\DEXTROMETHORPHAN\SODIUM CITRATE
  77. DULERA [Concomitant]
     Active Substance: FORMOTEROL FUMARATE DIHYDRATE\MOMETASONE FUROATE
  78. SPIRIVA [Concomitant]
     Active Substance: TIOTROPIUM BROMIDE MONOHYDRATE
  79. LORAZEPAM. [Concomitant]
     Active Substance: LORAZEPAM
  80. SODIUM BICARBONATE. [Concomitant]
     Active Substance: SODIUM BICARBONATE
  81. CYCLOBENZAPRINE. [Concomitant]
     Active Substance: CYCLOBENZAPRINE
  82. IMITREX [Concomitant]
     Active Substance: SUMATRIPTAN SUCCINATE
  83. ASPIRIN. [Concomitant]
     Active Substance: ASPIRIN
     Indication: PAIN
  84. ALEVE [Concomitant]
     Active Substance: NAPROXEN SODIUM
     Indication: PAIN
  85. BENADRYL [Concomitant]
     Active Substance: DIPHENHYDRAMINE HYDROCHLORIDE
     Indication: HYPERSENSITIVITY
  86. FISH OIL [Concomitant]
     Active Substance: FISH OIL
     Indication: BLOOD CHOLESTEROL ABNORMAL
  87. MORPHINE SULPHATE [Concomitant]
     Active Substance: MORPHINE SULFATE
  88. WARFARIN [Concomitant]
     Active Substance: WARFARIN
  89. AMLODIPINE [Concomitant]
     Active Substance: AMLODIPINE BESYLATE
  90. BYDUREON [Concomitant]
     Active Substance: EXENATIDE
  91. GEODON [Concomitant]
     Active Substance: ZIPRASIDONE HYDROCHLORIDE\ZIPRASIDONE MESYLATE
  92. IODINE. [Concomitant]
     Active Substance: IODINE
  93. ACETAMINOPHEN-CODEINE [Concomitant]
     Active Substance: ACETAMINOPHEN\CODEINE PHOSPHATE
  94. LAXATIVE [Concomitant]
     Active Substance: UNSPECIFIED INGREDIENT
  95. DOBUTAMINE [Concomitant]
     Active Substance: DOBUTAMINE HYDROCHLORIDE
  96. NOREPINEPHRINE. [Concomitant]
     Active Substance: NOREPINEPHRINE
  97. ZOVIRAX [Concomitant]
     Active Substance: ACYCLOVIR
  98. PHENAZOPYRIDINE. [Concomitant]
     Active Substance: PHENAZOPYRIDINE

REACTIONS (3)
  - Chronic kidney disease [Not Recovered/Not Resolved]
  - Renal failure [Unknown]
  - Acute kidney injury [Unknown]

NARRATIVE: CASE EVENT DATE: 20120513
